FAERS Safety Report 7467305-1 (Version None)
Quarter: 2011Q2

REPORT INFORMATION
  Report Type: 
  Country: None (occurrence: None)
  Receive Date: 20110509
  Receipt Date: 20110429
  Transmission Date: 20111010
  Serious: Yes (Hospitalization, Other)
  Sender: FDA-Public Use
  Company Number: US-MPIJNJ-2011-01767

PATIENT
  Age: 1 Year
  Sex: Female
  Weight: 9.92 kg

DRUGS (4)
  1. ETOPOSIDE [Suspect]
     Indication: ACUTE MYELOID LEUKAEMIA
     Dosage: 150 MG/M2, CYCLIC
     Route: 042
     Dates: start: 20110330, end: 20110403
  2. VELCADE [Suspect]
     Indication: ACUTE MYELOID LEUKAEMIA
     Dosage: 1.3 MG/M2, CYCLIC
     Route: 040
     Dates: start: 20110330, end: 20110406
  3. CYTARABINE [Suspect]
     Indication: ACUTE MYELOID LEUKAEMIA
     Dosage: 1000 MG/M2, CYCLIC
     Route: 042
     Dates: start: 20110330, end: 20110403
  4. CYTARABINE [Suspect]
     Dosage: UNK MG/M2, CYCLIC
     Route: 037
     Dates: start: 20110330

REACTIONS (9)
  - HAEMORRHAGE INTRACRANIAL [None]
  - SEPSIS [None]
  - HYPOALBUMINAEMIA [None]
  - GAMMA-GLUTAMYLTRANSFERASE INCREASED [None]
  - GASTRIC HAEMORRHAGE [None]
  - HYPOKALAEMIA [None]
  - HYPERGLYCAEMIA [None]
  - BACTERAEMIA [None]
  - RHINITIS [None]
